FAERS Safety Report 9000611 (Version 1)
Quarter: 2013Q1

REPORT INFORMATION
  Report Type: Spontaneous
  Country: US (occurrence: US)
  Receive Date: 20130107
  Receipt Date: 20130107
  Transmission Date: 20140127
  Serious: No
  Sender: FDA-Public Use
  Company Number: US-PFIZER INC-2013005509

PATIENT
  Age: 35 Year
  Sex: Male
  Weight: 67.57 kg

DRUGS (3)
  1. CHANTIX [Suspect]
     Indication: SMOKING CESSATION THERAPY
     Dosage: UNK
     Dates: start: 201212, end: 2012
  2. CHANTIX [Suspect]
     Dosage: 1.0 MG, 2X/DAY
     Dates: start: 201212
  3. ALPRAZOLAM [Concomitant]
     Indication: SLEEP DISORDER
     Dosage: 1 MG, DAILY

REACTIONS (2)
  - Painful defaecation [Not Recovered/Not Resolved]
  - Headache [Not Recovered/Not Resolved]
